FAERS Safety Report 9555692 (Version 1)
Quarter: 2013Q3

REPORT INFORMATION
  Report Type: Spontaneous
  Country: US (occurrence: None)
  Receive Date: 20130724
  Receipt Date: 20130724
  Transmission Date: 20140515
  Serious: No
  Sender: FDA-Public Use
  Company Number: PHEH2013US006246

PATIENT
  Age: 35 Year
  Sex: Female
  Weight: 72.6 kg

DRUGS (17)
  1. GILENYA (FINGOLIMOD) CAPSULE, 0.5MG [Suspect]
     Indication: MULTIPLE SCLEROSIS
     Route: 048
     Dates: start: 20121203, end: 20130315
  2. XANAX (ALPRAZOLAM) [Concomitant]
  3. FROVA (FROVATRIPTAN SUCCINATE MONOHYDRATE) [Concomitant]
  4. PAXIL (PAROXETINE HYDROCHLORIDE) [Concomitant]
  5. MESTINON (PYRIDOSTIGMINE BROMIDE) [Concomitant]
  6. MEDROL (METHYLPREDNISOLONE) [Concomitant]
  7. POLYETHYLENE GLYCOL (MACROGOL) [Concomitant]
  8. LINACLOTIDE (LINACLOTIDE) [Concomitant]
  9. NABUMETONE (NABUMETONE) [Concomitant]
  10. NUEDEXTA (DEXTROMETHORPHAN HYDROBROMIDE, QUINIDINE SULFATE) [Concomitant]
  11. AMANTADINE (AMANTADINE) [Concomitant]
  12. OXYBUTYNIN (OXYBUTYNIN) [Concomitant]
  13. BACLOFEN (BACLOFEN) [Concomitant]
  14. CELEXA (CITALOPRAM HYDROBROMIDE) [Concomitant]
  15. DETROL (TOLTERODINE L-TARTRATE) [Concomitant]
  16. GABAPENTIN (GABAPENTIN) [Concomitant]
  17. NUCYNTA (TAPENTADOL HYDROCHLORIDE) [Concomitant]

REACTIONS (2)
  - Anxiety [None]
  - Panic attack [None]
